FAERS Safety Report 12912526 (Version 7)
Quarter: 2018Q3

REPORT INFORMATION
  Report Type: Spontaneous
  Country: GB (occurrence: GB)
  Receive Date: 20161104
  Receipt Date: 20180820
  Transmission Date: 20181010
  Serious: Yes (Other)
  Sender: FDA-Public Use
  Company Number: GB-UCBSA-2016042209

PATIENT
  Sex: Female

DRUGS (4)
  1. IRON [Concomitant]
     Active Substance: IRON
     Indication: IRON DEFICIENCY
  2. FOLIC ACID. [Interacting]
     Active Substance: FOLIC ACID
     Indication: PRODUCT USED FOR UNKNOWN INDICATION
     Dosage: UNK
  3. TEGRETOL [Concomitant]
     Active Substance: CARBAMAZEPINE
     Indication: PRODUCT USED FOR UNKNOWN INDICATION
     Dosage: 400 MG, 2X/DAY (BID)
     Dates: start: 2004
  4. KEPPRA [Suspect]
     Active Substance: LEVETIRACETAM
     Indication: EPILEPSY
     Dosage: 250 MG, 2X/DAY (BID)
     Route: 048
     Dates: start: 2004

REACTIONS (11)
  - Headache [Unknown]
  - Myalgia [Unknown]
  - Dyspnoea [Unknown]
  - Drug interaction [Unknown]
  - Cerebral atrophy [Unknown]
  - Abnormal behaviour [Unknown]
  - Aggression [Unknown]
  - Depression [Unknown]
  - Suicidal ideation [Unknown]
  - Tonic convulsion [Unknown]
  - Urinary tract infection [Unknown]
